FAERS Safety Report 7450592-3 (Version None)
Quarter: 2011Q2

REPORT INFORMATION
  Report Type: 
  Country: None (occurrence: None)
  Receive Date: 20110422
  Receipt Date: 20110411
  Transmission Date: 20111010
  Serious: Yes (Hospitalization, Other)
  Sender: FDA-Public Use
  Company Number: 014530

PATIENT
  Sex: Female
  Weight: 49.1 kg

DRUGS (7)
  1. CIPROFLOXACIN [Concomitant]
  2. SALOFALK /00000301/ [Concomitant]
  3. PREDNISOLONE [Concomitant]
  4. HYDROCORTISONE [Concomitant]
  5. METRONIDAZOLE [Concomitant]
  6. CIMZIA [Suspect]
     Indication: CROHN'S DISEASE
     Dosage: SEE IMAGE
     Route: 058
     Dates: start: 20080714
  7. CIMZIA [Suspect]
     Indication: CROHN'S DISEASE
     Dosage: SEE IMAGE
     Route: 058
     Dates: end: 20110308

REACTIONS (4)
  - COLONIC POLYP [None]
  - CROHN'S DISEASE [None]
  - CONDITION AGGRAVATED [None]
  - VAGINAL INFLAMMATION [None]
